FAERS Safety Report 8887879 (Version 1)
Quarter: 2012Q4

REPORT INFORMATION
  Report Type: 
  Country: US (occurrence: US)
  Receive Date: 20121106
  Receipt Date: 20121106
  Transmission Date: 20130627
  Serious: No
  Sender: FDA-Public Use
  Company Number: US-BAYER-2012-102812

PATIENT

DRUGS (1)
  1. LEVITRA [Suspect]
     Dosage: 0.5 DF, QD
     Dates: start: 2005

REACTIONS (1)
  - Drug ineffective [None]
